FAERS Safety Report 8596516-7 (Version None)
Quarter: 2012Q3

REPORT INFORMATION
  Report Type: 
  Country: None (occurrence: None)
  Receive Date: 20120806
  Receipt Date: 20120806
  Transmission Date: 20120928
  Serious: No
  Sender: FDA-Public Use
  Company Number: None

PATIENT
  Age: 56 Year
  Sex: Female
  Weight: 67.1324 kg

DRUGS (1)
  1. VAGIFEM [Suspect]
     Indication: VULVOVAGINAL DRYNESS
     Dosage: 1 TABLET TWICE A WEEK VAG
     Route: 067
     Dates: start: 20120703, end: 20120726

REACTIONS (6)
  - VAGINAL DISCHARGE [None]
  - SEBORRHOEA [None]
  - IRRITABILITY [None]
  - HOT FLUSH [None]
  - ACNE [None]
  - HAIR GROWTH ABNORMAL [None]
